FAERS Safety Report 26130802 (Version 1)
Quarter: 2025Q4

REPORT INFORMATION
  Report Type: Spontaneous
  Country: GB (occurrence: GB)
  Receive Date: 20251208
  Receipt Date: 20251208
  Transmission Date: 20260118
  Serious: Yes (Disabling, Other)
  Sender: MYLAN
  Company Number: None

PATIENT
  Age: 67 Year
  Sex: Female
  Weight: 113 kg

DRUGS (32)
  1. ATORVASTATIN [Suspect]
     Active Substance: ATORVASTATIN
     Indication: Product used for unknown indication
     Dosage: 1 DOSAGE FORM, QD
     Dates: start: 20230102, end: 20250312
  2. ATORVASTATIN [Suspect]
     Active Substance: ATORVASTATIN
     Dosage: 1 DOSAGE FORM, QD
     Route: 065
     Dates: start: 20230102, end: 20250312
  3. ATORVASTATIN [Suspect]
     Active Substance: ATORVASTATIN
     Dosage: 1 DOSAGE FORM, QD
     Route: 065
     Dates: start: 20230102, end: 20250312
  4. ATORVASTATIN [Suspect]
     Active Substance: ATORVASTATIN
     Dosage: 1 DOSAGE FORM, QD
     Dates: start: 20230102, end: 20250312
  5. PREDNISOLONE [Concomitant]
     Active Substance: PREDNISOLONE
     Dosage: 50 MILLIGRAM, QOD (AS PER NEUROL ADVICE TITRATING UP TO MAX 50MG ALTERNATE DAYS)
     Dates: start: 20250305, end: 20250424
  6. PREDNISOLONE [Concomitant]
     Active Substance: PREDNISOLONE
     Dosage: 50 MILLIGRAM, QOD (AS PER NEUROL ADVICE TITRATING UP TO MAX 50MG ALTERNATE DAYS)
     Dates: start: 20250305, end: 20250424
  7. PREDNISOLONE [Concomitant]
     Active Substance: PREDNISOLONE
     Dosage: 50 MILLIGRAM, QOD (AS PER NEUROL ADVICE TITRATING UP TO MAX 50MG ALTERNATE DAYS)
     Route: 065
     Dates: start: 20250305, end: 20250424
  8. PREDNISOLONE [Concomitant]
     Active Substance: PREDNISOLONE
     Dosage: 50 MILLIGRAM, QOD (AS PER NEUROL ADVICE TITRATING UP TO MAX 50MG ALTERNATE DAYS)
     Route: 065
     Dates: start: 20250305, end: 20250424
  9. PREDNISOLONE [Concomitant]
     Active Substance: PREDNISOLONE
     Dosage: 9 MILLIGRAM, QOD (AS PER NEUROL ADVICE TITRATING UP TO MAX 50MG ALTERNATE DAYS)
     Dates: start: 20250522
  10. PREDNISOLONE [Concomitant]
     Active Substance: PREDNISOLONE
     Dosage: 9 MILLIGRAM, QOD (AS PER NEUROL ADVICE TITRATING UP TO MAX 50MG ALTERNATE DAYS)
     Dates: start: 20250522
  11. PREDNISOLONE [Concomitant]
     Active Substance: PREDNISOLONE
     Dosage: 9 MILLIGRAM, QOD (AS PER NEUROL ADVICE TITRATING UP TO MAX 50MG ALTERNATE DAYS)
     Route: 065
     Dates: start: 20250522
  12. PREDNISOLONE [Concomitant]
     Active Substance: PREDNISOLONE
     Dosage: 9 MILLIGRAM, QOD (AS PER NEUROL ADVICE TITRATING UP TO MAX 50MG ALTERNATE DAYS)
     Route: 065
     Dates: start: 20250522
  13. PREDNISOLONE [Concomitant]
     Active Substance: PREDNISOLONE
     Dosage: 1 DOSAGE FORM, QOD (ONE TABLET ALTERNATE DAYS)
  14. PREDNISOLONE [Concomitant]
     Active Substance: PREDNISOLONE
     Dosage: 1 DOSAGE FORM, QOD (ONE TABLET ALTERNATE DAYS)
     Route: 065
  15. PREDNISOLONE [Concomitant]
     Active Substance: PREDNISOLONE
     Dosage: 1 DOSAGE FORM, QOD (ONE TABLET ALTERNATE DAYS)
  16. PREDNISOLONE [Concomitant]
     Active Substance: PREDNISOLONE
     Dosage: 1 DOSAGE FORM, QOD (ONE TABLET ALTERNATE DAYS)
     Route: 065
  17. APIXABAN [Concomitant]
     Active Substance: APIXABAN
     Indication: Atrial fibrillation
     Dosage: 1 DOSAGE FORM, BID (1 TWICE DAILY, ANNUAL BLOOD TESTS AND WEIGHT, AF)
     Dates: start: 20250306
  18. APIXABAN [Concomitant]
     Active Substance: APIXABAN
     Dosage: 1 DOSAGE FORM, BID (1 TWICE DAILY, ANNUAL BLOOD TESTS AND WEIGHT, AF)
     Route: 065
     Dates: start: 20250306
  19. APIXABAN [Concomitant]
     Active Substance: APIXABAN
     Dosage: 1 DOSAGE FORM, BID (1 TWICE DAILY, ANNUAL BLOOD TESTS AND WEIGHT, AF)
     Route: 065
     Dates: start: 20250306
  20. APIXABAN [Concomitant]
     Active Substance: APIXABAN
     Dosage: 1 DOSAGE FORM, BID (1 TWICE DAILY, ANNUAL BLOOD TESTS AND WEIGHT, AF)
     Dates: start: 20250306
  21. ENSTILAR [Concomitant]
     Active Substance: BETAMETHASONE DIPROPIONATE\CALCIPOTRIENE HYDRATE
     Dosage: 120 GRAM, QD (APPLY ONCE DAY TO AFFECTED AREAS. READ INFORMATION LEAFLET, 50MCG/G / 0.5 MG/G)
     Dates: start: 20250312, end: 20250424
  22. ENSTILAR [Concomitant]
     Active Substance: BETAMETHASONE DIPROPIONATE\CALCIPOTRIENE HYDRATE
     Dosage: 120 GRAM, QD (APPLY ONCE DAY TO AFFECTED AREAS. READ INFORMATION LEAFLET, 50MCG/G / 0.5 MG/G)
     Route: 065
     Dates: start: 20250312, end: 20250424
  23. ENSTILAR [Concomitant]
     Active Substance: BETAMETHASONE DIPROPIONATE\CALCIPOTRIENE HYDRATE
     Dosage: 120 GRAM, QD (APPLY ONCE DAY TO AFFECTED AREAS. READ INFORMATION LEAFLET, 50MCG/G / 0.5 MG/G)
     Route: 065
     Dates: start: 20250312, end: 20250424
  24. ENSTILAR [Concomitant]
     Active Substance: BETAMETHASONE DIPROPIONATE\CALCIPOTRIENE HYDRATE
     Dosage: 120 GRAM, QD (APPLY ONCE DAY TO AFFECTED AREAS. READ INFORMATION LEAFLET, 50MCG/G / 0.5 MG/G)
     Dates: start: 20250312, end: 20250424
  25. TRIMOVATE [Concomitant]
     Active Substance: CLOBETASONE BUTYRATE\NYSTATIN\OXYTETRACYCLINE CALCIUM
     Dosage: 30 GRAM, BID (APPLY THIN LAYER TO AFFECTED AREA FOR 1 WK. KEEP AREA AS DRY AS POSSIBLE)
     Dates: start: 20250402, end: 20250515
  26. TRIMOVATE [Concomitant]
     Active Substance: CLOBETASONE BUTYRATE\NYSTATIN\OXYTETRACYCLINE CALCIUM
     Dosage: 30 GRAM, BID (APPLY THIN LAYER TO AFFECTED AREA FOR 1 WK. KEEP AREA AS DRY AS POSSIBLE)
     Route: 065
     Dates: start: 20250402, end: 20250515
  27. TRIMOVATE [Concomitant]
     Active Substance: CLOBETASONE BUTYRATE\NYSTATIN\OXYTETRACYCLINE CALCIUM
     Dosage: 30 GRAM, BID (APPLY THIN LAYER TO AFFECTED AREA FOR 1 WK. KEEP AREA AS DRY AS POSSIBLE)
     Route: 065
     Dates: start: 20250402, end: 20250515
  28. TRIMOVATE [Concomitant]
     Active Substance: CLOBETASONE BUTYRATE\NYSTATIN\OXYTETRACYCLINE CALCIUM
     Dosage: 30 GRAM, BID (APPLY THIN LAYER TO AFFECTED AREA FOR 1 WK. KEEP AREA AS DRY AS POSSIBLE)
     Dates: start: 20250402, end: 20250515
  29. Sebco [Concomitant]
     Dosage: 120 GRAM, PRN (ON SKIN. LV FOR 1 HRS PRE WASHING OFF. APPLY QD FOR 1ST 3-7 DAYS, USE WEEKLY AS MNT.)
     Dates: start: 20250402, end: 20250515
  30. Sebco [Concomitant]
     Dosage: 120 GRAM, PRN (ON SKIN. LV FOR 1 HRS PRE WASHING OFF. APPLY QD FOR 1ST 3-7 DAYS, USE WEEKLY AS MNT.)
     Route: 061
     Dates: start: 20250402, end: 20250515
  31. Sebco [Concomitant]
     Dosage: 120 GRAM, PRN (ON SKIN. LV FOR 1 HRS PRE WASHING OFF. APPLY QD FOR 1ST 3-7 DAYS, USE WEEKLY AS MNT.)
     Route: 061
     Dates: start: 20250402, end: 20250515
  32. Sebco [Concomitant]
     Dosage: 120 GRAM, PRN (ON SKIN. LV FOR 1 HRS PRE WASHING OFF. APPLY QD FOR 1ST 3-7 DAYS, USE WEEKLY AS MNT.)
     Dates: start: 20250402, end: 20250515

REACTIONS (3)
  - Myasthenia gravis [Recovering/Resolving]
  - Mastication disorder [Recovering/Resolving]
  - Diplopia [Recovering/Resolving]

NARRATIVE: CASE EVENT DATE: 20230703
